FAERS Safety Report 24036405 (Version 1)
Quarter: 2024Q3

REPORT INFORMATION
  Report Type: Spontaneous
  Country: US (occurrence: US)
  Receive Date: 20240701
  Receipt Date: 20240701
  Transmission Date: 20241016
  Serious: Yes (Death, Hospitalization, Other)
  Sender: BAXTER
  Company Number: US-BAXTER-2023BAX024433

PATIENT
  Age: 68 Year
  Sex: Male
  Weight: 74.8 kg

DRUGS (34)
  1. DOXORUBICIN [Suspect]
     Active Substance: DOXORUBICIN
     Indication: Product used for unknown indication
     Dosage: 100 MG, C1D1, AS A PART OF RCHOP REGIMEN
     Route: 065
     Dates: start: 20230427, end: 20230427
  2. CYCLOPHOSPHAMIDE [Suspect]
     Active Substance: CYCLOPHOSPHAMIDE
     Indication: Product used for unknown indication
     Dosage: 1430 MG, C1D1, AS A PART OF RCHOP REGIMEN
     Route: 065
     Dates: start: 20230427, end: 20230427
  3. EPCORITAMAB [Suspect]
     Active Substance: EPCORITAMAB
     Indication: Diffuse large B-cell lymphoma stage IV
     Dosage: PRIMING DOSE: 0.16 MG, SINGLE, C1D1
     Route: 058
     Dates: start: 20230313, end: 20230313
  4. EPCORITAMAB [Suspect]
     Active Substance: EPCORITAMAB
     Dosage: INTERMEDIATE DOSE: 0.8 MG, SINGLE, C1D8
     Route: 058
     Dates: start: 20230320, end: 20230320
  5. EPCORITAMAB [Suspect]
     Active Substance: EPCORITAMAB
     Dosage: FULL DOSE: 48 MG, WEEKLY, C1D15 - C2D1
     Route: 058
     Dates: start: 20230327, end: 20230414
  6. EPCORITAMAB [Suspect]
     Active Substance: EPCORITAMAB
     Dosage: 48 MG, C2D1, PRIOR TO EVENT ONSET
     Route: 058
     Dates: start: 20230414, end: 20230414
  7. PREDNISONE [Suspect]
     Active Substance: PREDNISONE
     Indication: Product used for unknown indication
     Dosage: 100 MG, C1D1, AS A PART OF R-CHOP REGIMEN
     Route: 065
     Dates: start: 20230427, end: 20230427
  8. PREDNISONE [Suspect]
     Active Substance: PREDNISONE
     Dosage: 50 MG
     Route: 065
     Dates: start: 20230526
  9. PREDNISONE [Suspect]
     Active Substance: PREDNISONE
     Dosage: 40 MG
     Route: 065
     Dates: start: 20230601
  10. PREDNISONE [Suspect]
     Active Substance: PREDNISONE
     Dosage: 20 MG
     Route: 065
     Dates: start: 20230608
  11. PREDNISONE [Suspect]
     Active Substance: PREDNISONE
     Dosage: 10 MG
     Route: 065
     Dates: start: 20230615
  12. RITUXIMAB [Suspect]
     Active Substance: RITUXIMAB
     Indication: Product used for unknown indication
     Dosage: 700 MG, C1D1, AS A PART OF R-CHOP REGIMEN
     Route: 065
     Dates: start: 20230427, end: 20230427
  13. VINCRISTINE SULFATE [Suspect]
     Active Substance: VINCRISTINE SULFATE
     Indication: Product used for unknown indication
     Dosage: 2 MG, C1D1, AS A PART OF R-CHOP REGIMEN
     Route: 065
     Dates: start: 20230427, end: 20230427
  14. DIPHENHYDRAMINE [Concomitant]
     Active Substance: DIPHENHYDRAMINE
     Dosage: 50 MG
     Route: 048
     Dates: start: 20230407, end: 20230407
  15. ACETAMINOPHEN [Concomitant]
     Active Substance: ACETAMINOPHEN
     Dosage: 650 MG
     Route: 048
     Dates: start: 20230407, end: 20230414
  16. ACETAMINOPHEN [Concomitant]
     Active Substance: ACETAMINOPHEN
     Dosage: UNK, ONGOING
     Route: 065
     Dates: start: 20170215
  17. PREDNISONE [Concomitant]
     Active Substance: PREDNISONE
     Dosage: 100 MG
     Route: 048
     Dates: start: 20230408, end: 20230410
  18. PREDNISONE [Concomitant]
     Active Substance: PREDNISONE
     Dosage: 20 MG
     Route: 048
     Dates: start: 20230414
  19. ACYCLOVIR [Concomitant]
     Active Substance: ACYCLOVIR
     Dosage: UNK
     Route: 065
     Dates: start: 20230313
  20. ALLOPURINOL [Concomitant]
     Active Substance: ALLOPURINOL
     Dosage: UNK
     Route: 065
     Dates: start: 20230317
  21. CARBIDOPA\LEVODOPA [Concomitant]
     Active Substance: CARBIDOPA\LEVODOPA
     Dosage: UNK, ONGOING
     Route: 065
     Dates: start: 20190907
  22. DOXAZOSIN [Concomitant]
     Active Substance: DOXAZOSIN MESYLATE
     Dosage: UNK, START DATE: MAR-2014, ONGOING
     Route: 065
  23. FINASTERIDE [Concomitant]
     Active Substance: FINASTERIDE
     Dosage: UNK, START DATE: MAR-2014, ONGOING
     Route: 065
  24. LORAZEPAM [Concomitant]
     Active Substance: LORAZEPAM
     Dosage: UNK, ONGOING
     Route: 065
     Dates: start: 20230313
  25. MELATONIN [Concomitant]
     Active Substance: MELATONIN
     Dosage: UNK, START DATE: JAN-2021, ONGOING
     Route: 065
  26. ONDANSETRON [Concomitant]
     Active Substance: ONDANSETRON
     Dosage: UNK, START DATE: JAN-2020, ONGOING
     Route: 065
  27. OXYCODONE [Concomitant]
     Active Substance: OXYCODONE
     Dosage: UNK, ONGOING
     Route: 065
     Dates: start: 20230127
  28. DAPTOMYCIN [Concomitant]
     Active Substance: DAPTOMYCIN
     Dosage: UNK, ONGOING
     Route: 065
     Dates: start: 20230421
  29. IBUPROFEN [Concomitant]
     Active Substance: IBUPROFEN
     Dosage: UNK, ONGOING
     Route: 065
     Dates: start: 20230412
  30. SULFAMETHOXAZOLE\TRIMETHOPRIM [Concomitant]
     Active Substance: SULFAMETHOXAZOLE\TRIMETHOPRIM
     Dosage: UNK
     Route: 065
     Dates: start: 20230417, end: 20230426
  31. HYDROXYZINE [Concomitant]
     Active Substance: HYDROXYZINE HYDROCHLORIDE
     Dosage: UNK
     Route: 065
     Dates: start: 20230518, end: 20230518
  32. ENOXAPARIN [Concomitant]
     Active Substance: ENOXAPARIN
     Dosage: UNK
     Route: 065
     Dates: start: 20230517, end: 20230519
  33. LOPERAMIDE [Concomitant]
     Active Substance: LOPERAMIDE
     Dosage: UNK
     Route: 065
     Dates: start: 20230401
  34. DOXYCYCLINE HYCLATE [Concomitant]
     Active Substance: DOXYCYCLINE HYCLATE
     Dosage: UNK
     Route: 065
     Dates: start: 20230417, end: 20230424

REACTIONS (9)
  - Disease progression [Fatal]
  - Respiratory failure [Recovering/Resolving]
  - Pneumocystis jirovecii pneumonia [Recovered/Resolved]
  - Fatigue [Recovering/Resolving]
  - Dyspnoea [Recovering/Resolving]
  - Chills [Recovering/Resolving]
  - Pyrexia [Recovering/Resolving]
  - Hypoxia [Recovering/Resolving]
  - Cough [Recovering/Resolving]

NARRATIVE: CASE EVENT DATE: 20230508
